FAERS Safety Report 4730654-1 (Version None)
Quarter: 2005Q3

REPORT INFORMATION
  Report Type: 
  Country: None (occurrence: None)
  Receive Date: 20050725
  Receipt Date: 20050228
  Transmission Date: 20060218
  Serious: No
  Sender: FDA-Public Use
  Company Number: USA050392270

PATIENT
  Age: 30 Year
  Sex: Female
  Weight: 82 kg

DRUGS (3)
  1. SYMBYAX [Suspect]
     Indication: SCHIZOAFFECTIVE DISORDER
     Dates: start: 20040901, end: 20050201
  2. STRATTERA [Suspect]
     Dosage: 25 MG/D
  3. AMANTADINE [Concomitant]

REACTIONS (2)
  - ESSENTIAL TREMOR [None]
  - WEIGHT INCREASED [None]
